FAERS Safety Report 15951287 (Version 1)
Quarter: 2019Q1

REPORT INFORMATION
  Report Type: Spontaneous
  Country: JP (occurrence: JP)
  Receive Date: 20190212
  Receipt Date: 20190212
  Transmission Date: 20190417
  Serious: Yes (Other)
  Sender: FDA-Public Use
  Company Number: JP-ALLERGAN-1905699US

PATIENT
  Sex: Male

DRUGS (2)
  1. DEPAS (ETIZOLAM) [Suspect]
     Active Substance: ETIZOLAM
     Indication: PRODUCT USED FOR UNKNOWN INDICATION
     Dosage: TWO 0.5 MG TABLETS PER DAY, AS NEEDED
     Route: 048
  2. URSODEOXYCHOLIC ACID - BP [Suspect]
     Active Substance: URSODIOL
     Indication: PRODUCT USED FOR UNKNOWN INDICATION
     Dosage: 50 MG, UNK
     Route: 048

REACTIONS (4)
  - Cataract [Unknown]
  - Macular hole [Unknown]
  - Visual impairment [Unknown]
  - Accidental exposure to product [Unknown]
